FAERS Safety Report 11143790 (Version 1)
Quarter: 2015Q2

REPORT INFORMATION
  Report Type: Spontaneous
  Country: AU (occurrence: AU)
  Receive Date: 20150528
  Receipt Date: 20150528
  Transmission Date: 20150821
  Serious: Yes (Hospitalization, Disabling, Other)
  Sender: FDA-Public Use
  Company Number: AU-AMGEN-AUSSP2015050611

PATIENT
  Age: 22 Year
  Sex: Male
  Weight: 76 kg

DRUGS (1)
  1. PROLIA [Suspect]
     Active Substance: DENOSUMAB
     Indication: PRODUCT USED FOR UNKNOWN INDICATION
     Dosage: UNK
     Route: 065

REACTIONS (9)
  - Disability [Unknown]
  - Pain [Unknown]
  - Deformity [Unknown]
  - Wheelchair user [Unknown]
  - Depression [Unknown]
  - Treatment failure [Unknown]
  - Cellulitis [Unknown]
  - Off label use [Unknown]
  - Fracture [Unknown]
